FAERS Safety Report 14435471 (Version 1)
Quarter: 2018Q1

REPORT INFORMATION
  Report Type: Spontaneous
  Country: US (occurrence: US)
  Receive Date: 20180125
  Receipt Date: 20180125
  Transmission Date: 20180509
  Serious: No
  Sender: FDA-Public Use
  Company Number: US-UNITED THERAPEUTICS-UNT-2017-012185

PATIENT
  Age: 40 Year
  Sex: Female

DRUGS (10)
  1. REMODULIN [Suspect]
     Active Substance: TREPROSTINIL
     Dosage: 23.25 NG, Q1 MINUTE
     Route: 041
     Dates: start: 20170726
  2. UPTRAVI [Suspect]
     Active Substance: SELEXIPAG
     Indication: PRODUCT USED FOR UNKNOWN INDICATION
     Dosage: 400 ?G, BID
     Route: 065
     Dates: start: 20160628
  3. UPTRAVI [Suspect]
     Active Substance: SELEXIPAG
     Dosage: 1200 ?G, BID
     Route: 065
  4. UPTRAVI [Suspect]
     Active Substance: SELEXIPAG
     Dosage: 1400 ?G, BID
     Route: 065
     Dates: start: 20160815
  5. DIGOXIN. [Concomitant]
     Active Substance: DIGOXIN
     Indication: PRODUCT USED FOR UNKNOWN INDICATION
  6. REMODULIN [Suspect]
     Active Substance: TREPROSTINIL
     Indication: PULMONARY HYPERTENSION
     Dosage: 0.01675 ?G/KG, CONTINUING
     Route: 041
     Dates: start: 20170725
  7. AMBRISENTAN [Suspect]
     Active Substance: AMBRISENTAN
     Indication: PULMONARY ARTERIAL HYPERTENSION
     Dosage: 10 MG, QD
     Route: 065
     Dates: start: 20090206
  8. ADCIRCA [Suspect]
     Active Substance: TADALAFIL
     Indication: PULMONARY ARTERIAL HYPERTENSION
     Dosage: 40 ?G, QD
     Route: 065
     Dates: start: 20120713
  9. UPTRAVI [Suspect]
     Active Substance: SELEXIPAG
     Dosage: UNK
  10. PRADAXA [Concomitant]
     Active Substance: DABIGATRAN ETEXILATE MESYLATE
     Indication: PRODUCT USED FOR UNKNOWN INDICATION

REACTIONS (1)
  - Dermatitis contact [Not Recovered/Not Resolved]

NARRATIVE: CASE EVENT DATE: 2017
